APPROVED DRUG PRODUCT: CLONAZEPAM
Active Ingredient: CLONAZEPAM
Strength: 1MG
Dosage Form/Route: TABLET, ORALLY DISINTEGRATING;ORAL
Application: A078654 | Product #004
Applicant: SUN PHARMACEUTICAL INDUSTRIES INC
Approved: Aug 27, 2014 | RLD: No | RS: No | Type: DISCN